FAERS Safety Report 4584319-X (Version None)
Quarter: 2005Q1

REPORT INFORMATION
  Report Type: 
  Country: None (occurrence: None)
  Receive Date: 20050125
  Receipt Date: 20041025
  Transmission Date: 20050727
  Serious: No
  Sender: FDA-Public Use
  Company Number: USA041082217

PATIENT
  Sex: Female

DRUGS (2)
  1. FORTEO [Suspect]
     Dates: start: 20041020
  2. REMINYL [Concomitant]

REACTIONS (5)
  - DIZZINESS [None]
  - FEELING HOT [None]
  - NAUSEA [None]
  - PARAESTHESIA [None]
  - VOMITING [None]
